FAERS Safety Report 8381529-0 (Version None)
Quarter: 2012Q2

REPORT INFORMATION
  Report Type: 
  Country: None (occurrence: None)
  Receive Date: 20120523
  Receipt Date: 20120521
  Transmission Date: 20120825
  Serious: Yes (Death)
  Sender: FDA-Public Use
  Company Number: US-CELGENEUS-163-21880-12052565

PATIENT
  Sex: Male

DRUGS (13)
  1. PROTONIX [Concomitant]
     Dosage: 40 MILLIGRAM
     Route: 048
  2. HYDRALAZINE HCL [Concomitant]
     Dosage: 100 MILLIGRAM
     Route: 048
  3. MEGESTROL ACETATE [Concomitant]
     Dosage: 800MG/20
     Route: 048
  4. PREDNISONE [Concomitant]
     Dosage: 5MG/5ML
     Route: 065
  5. TYLENOL [Concomitant]
     Dosage: 500 MILLIGRAM
     Route: 048
  6. ATIVAN [Concomitant]
     Dosage: .5 MILLIGRAM
     Route: 048
  7. LOPRESSOR [Concomitant]
     Dosage: 5MG/5ML
     Route: 065
  8. OXYCONTIN [Concomitant]
     Dosage: 10 MILLIGRAM
     Route: 048
  9. PROBIOTIC [Concomitant]
     Route: 048
  10. AMBIEN [Concomitant]
     Dosage: 5 MILLIGRAM
     Route: 048
  11. DILAUDID [Concomitant]
     Dosage: 1 MILLIGRAM/MILLILITERS
     Route: 065
  12. REVLIMID [Suspect]
     Dosage: 25 MILLIGRAM
     Route: 048
     Dates: start: 20120501, end: 20120501
  13. VASOLEX [Concomitant]
     Route: 061

REACTIONS (1)
  - DEATH [None]
